FAERS Safety Report 5900113-9 (Version None)
Quarter: 2008Q3

REPORT INFORMATION
  Report Type: 
  Country: None (occurrence: None)
  Receive Date: 20080926
  Receipt Date: 20080917
  Transmission Date: 20090109
  Serious: Yes (Death, Life-Threatening, Hospitalization)
  Sender: FDA-Public Use
  Company Number: US-WYE-H06099008

PATIENT
  Sex: Male

DRUGS (1)
  1. TORISEL [Suspect]
     Indication: RENAL CELL CARCINOMA
     Dosage: 20-25MG WEEKLY
     Route: 042

REACTIONS (2)
  - NO THERAPEUTIC RESPONSE [None]
  - RENAL FAILURE ACUTE [None]
